FAERS Safety Report 5586141-4 (Version None)
Quarter: 2008Q1

REPORT INFORMATION
  Report Type: 
  Country: None (occurrence: None)
  Receive Date: 20080104
  Receipt Date: 20071221
  Transmission Date: 20080703
  Serious: Yes (Hospitalization)
  Sender: FDA-Public Use
  Company Number: 805#1#2007-00066

PATIENT
  Age: 66 Year
  Sex: Male

DRUGS (12)
  1. ALPROSTADIL [Suspect]
     Indication: POSTOPERATIVE CARE
     Dosage: 40 MCG; 80 MCG; INTRAVENOUS DRIP
     Route: 041
     Dates: start: 20071212, end: 20071212
  2. ALPROSTADIL [Suspect]
     Indication: POSTOPERATIVE CARE
     Dosage: 40 MCG; 80 MCG; INTRAVENOUS DRIP
     Route: 041
     Dates: start: 20071213, end: 20071213
  3. ALPROSTADIL [Suspect]
     Indication: POSTOPERATIVE CARE
     Dosage: 40 MCG; 80 MCG; INTRAVENOUS DRIP
     Route: 041
     Dates: start: 20071214, end: 20071215
  4. CEFAZOLIN SODIUM [Concomitant]
  5. CHARCOAL, ACTIVATED (CHARCOAL, ACTIVATED) [Concomitant]
  6. FUROSEMIDE [Concomitant]
  7. LAFUTIDINE [Concomitant]
  8. ALFACALCIDOL (ALFACALCIDOL) [Concomitant]
  9. AMLODIPINE BESYLATE [Concomitant]
  10. FERROUS CITRATE [Concomitant]
  11. ARGAMATE (CALCIUM POLYSTYRENE SULFONATE) [Concomitant]
  12. PREDNISONE [Concomitant]

REACTIONS (1)
  - PAIN IN EXTREMITY [None]
